FAERS Safety Report 4866598-4 (Version None)
Quarter: 2005Q4

REPORT INFORMATION
  Report Type: 
  Country: None (occurrence: None)
  Receive Date: 20051221
  Receipt Date: 20051205
  Transmission Date: 20060501
  Serious: Yes (Other)
  Sender: FDA-Public Use
  Company Number: SP00748

PATIENT
  Age: 25 Year
  Sex: Male
  Weight: 65 kg

DRUGS (1)
  1. COLAZAL [Suspect]
     Indication: CROHN'S DISEASE
     Dosage: 2.25 MG/TID
     Dates: start: 20030911

REACTIONS (2)
  - BURNING SENSATION [None]
  - SKIN DISCOLOURATION [None]
